FAERS Safety Report 7986699-1 (Version None)
Quarter: 2011Q4

REPORT INFORMATION
  Report Type: 
  Country: None (occurrence: None)
  Receive Date: 20111216
  Receipt Date: 20110812
  Transmission Date: 20120403
  Serious: No
  Sender: FDA-Public Use
  Company Number: US-BRISTOL-MYERS SQUIBB COMPANY-15968951

PATIENT
  Age: 35 Year
  Sex: Female
  Weight: 64 kg

DRUGS (2)
  1. ABILIFY [Suspect]
     Dates: start: 20110805
  2. CELEXA [Concomitant]

REACTIONS (5)
  - RESTLESSNESS [None]
  - DIZZINESS [None]
  - SPEECH DISORDER [None]
  - VISION BLURRED [None]
  - CONSTIPATION [None]
